FAERS Safety Report 16906915 (Version 1)
Quarter: 2019Q4

REPORT INFORMATION
  Report Type: Spontaneous
  Country: CA (occurrence: CA)
  Receive Date: 20191011
  Receipt Date: 20191011
  Transmission Date: 20200122
  Serious: Yes (Other)
  Sender: FDA-Public Use
  Company Number: CA-TEVA-2019-CA-1119296

PATIENT
  Age: 56 Year
  Sex: Female

DRUGS (3)
  1. VENLAFAXINE HYDROCHLORIDE. [Suspect]
     Active Substance: VENLAFAXINE HYDROCHLORIDE
     Indication: DEPRESSION
     Dosage: 37.5 MILLIGRAM DAILY;
     Route: 048
  2. ESCITALOPRAM OXALATE. [Concomitant]
     Active Substance: ESCITALOPRAM OXALATE
  3. VYVANSE [Concomitant]
     Active Substance: LISDEXAMFETAMINE DIMESYLATE

REACTIONS (5)
  - Drug ineffective [Unknown]
  - Suicidal ideation [Unknown]
  - Abnormal dreams [Unknown]
  - Negative thoughts [Unknown]
  - Feeling abnormal [Unknown]
